FAERS Safety Report 15685882 (Version 3)
Quarter: 2019Q2

REPORT INFORMATION
  Report Type: Spontaneous
  Country: US (occurrence: US)
  Receive Date: 20181204
  Receipt Date: 20190515
  Transmission Date: 20190711
  Serious: Yes (Other)
  Sender: FDA-Public Use
  Company Number: US-SA-2018SA325890

PATIENT
  Age: 59 Year
  Sex: Female
  Weight: 84 kg

DRUGS (14)
  1. PROMETHAZINE [Concomitant]
     Active Substance: PROMETHAZINE\PROMETHAZINE HYDROCHLORIDE
     Dosage: UNK
     Route: 065
     Dates: start: 2011
  2. NEOSAR [Concomitant]
     Active Substance: CYCLOPHOSPHAMIDE
     Route: 065
  3. VITAMIN D [VITAMIN D NOS] [Concomitant]
     Active Substance: VITAMIN D NOS
     Dosage: UNK
     Route: 065
     Dates: start: 2011
  4. RANITIDINE. [Concomitant]
     Active Substance: RANITIDINE
     Dosage: UNK
     Route: 065
     Dates: start: 2011
  5. ZOFRAN [Concomitant]
     Active Substance: ONDANSETRON HYDROCHLORIDE
     Dosage: UNK
     Route: 065
     Dates: start: 2011
  6. HYDROMORPHONE [Concomitant]
     Active Substance: HYDROMORPHONE
     Dosage: UNK
     Route: 065
     Dates: start: 2011
  7. DOCETAXEL. [Suspect]
     Active Substance: DOCETAXEL
     Dosage: UNK, Q3W
     Route: 065
     Dates: start: 20141230, end: 20141230
  8. OXYCODONE [Concomitant]
     Active Substance: OXYCODONE
     Dosage: UNK
     Route: 065
     Dates: start: 2011
  9. OMEPRAZOLE. [Concomitant]
     Active Substance: OMEPRAZOLE
     Route: 065
  10. LYRICA [Concomitant]
     Active Substance: PREGABALIN
     Dosage: UNK
     Route: 065
     Dates: start: 200701
  11. TAMOXIFEN [Concomitant]
     Active Substance: TAMOXIFEN
     Route: 065
  12. LITHIUM. [Concomitant]
     Active Substance: LITHIUM
     Dosage: UNK
     Route: 065
     Dates: start: 200301
  13. CELEXA [CELECOXIB] [Concomitant]
     Active Substance: CELECOXIB
     Dosage: UNK
     Route: 065
     Dates: start: 199001
  14. DOCETAXEL. [Suspect]
     Active Substance: DOCETAXEL
     Indication: BREAST CANCER FEMALE
     Dosage: UNK, Q3W
     Route: 065
     Dates: start: 20141101, end: 20141101

REACTIONS (3)
  - Emotional distress [Unknown]
  - Anxiety [Unknown]
  - Alopecia [Recovering/Resolving]

NARRATIVE: CASE EVENT DATE: 201506
